FAERS Safety Report 7933467-2 (Version None)
Quarter: 2011Q4

REPORT INFORMATION
  Report Type: 
  Country: None (occurrence: None)
  Receive Date: 20111122
  Receipt Date: 20111115
  Transmission Date: 20120403
  Serious: Yes (Other)
  Sender: FDA-Public Use
  Company Number: IT-PFIZER INC-2011280522

PATIENT
  Age: 70 Year
  Sex: Male

DRUGS (3)
  1. METFORMIN/PIOGLITAZONE [Concomitant]
     Dosage: 865 MG, UNK
     Route: 048
  2. METFORAL [Concomitant]
     Dosage: 500 MG, UNK
     Route: 048
  3. ATORVASTATIN CALCIUM [Suspect]
     Indication: DYSLIPIDAEMIA
     Dosage: 40 MG, DAILY
     Route: 048
     Dates: start: 20101211, end: 20111102

REACTIONS (2)
  - ASTHENIA [None]
  - BLOOD CREATININE INCREASED [None]
